FAERS Safety Report 18296268 (Version 1)
Quarter: 2020Q3

REPORT INFORMATION
  Report Type: Spontaneous
  Country: US (occurrence: US)
  Receive Date: 20200922
  Receipt Date: 20200922
  Transmission Date: 20201103
  Serious: No
  Sender: FDA-Public Use
  Company Number: US-VIVUS, INC.-2019V1001095

PATIENT
  Age: 52 Year
  Sex: Female
  Weight: 135.29 kg

DRUGS (5)
  1. MSN [Concomitant]
     Indication: SUPPLEMENTATION THERAPY
     Route: 048
     Dates: start: 20190817
  2. QSYMIA [Suspect]
     Active Substance: PHENTERMINE HYDROCHLORIDE\TOPIRAMATE
     Indication: WEIGHT DECREASED
     Route: 048
  3. QSYMIA [Suspect]
     Active Substance: PHENTERMINE HYDROCHLORIDE\TOPIRAMATE
     Indication: WEIGHT DECREASED
     Route: 048
     Dates: start: 20190810
  4. GLUCO GEL [Concomitant]
     Indication: SUPPLEMENTATION THERAPY
  5. HUMAN GROWTH HORMONE [Concomitant]
     Active Substance: SOMATROPIN
     Indication: SUPPLEMENTATION THERAPY

REACTIONS (2)
  - Product dose omission issue [Recovered/Resolved]
  - Asthenia [Not Recovered/Not Resolved]

NARRATIVE: CASE EVENT DATE: 2019
